FAERS Safety Report 8833042 (Version 1)
Quarter: 2012Q4

REPORT INFORMATION
  Report Type: 
  Country: US (occurrence: US)
  Receive Date: 20121010
  Receipt Date: 20121010
  Transmission Date: 20130627
  Serious: Yes (Other)
  Sender: FDA-Public Use
  Company Number: US-PFIZER INC-2012250557

PATIENT
  Age: 28 Year
  Sex: Male
  Weight: 109 kg

DRUGS (1)
  1. ZOLOFT [Suspect]
     Indication: POST-TRAUMATIC STRESS DISORDER
     Dosage: 100 mg, daily
     Dates: start: 201207, end: 201210

REACTIONS (5)
  - Cerebrovascular accident [Unknown]
  - Headache [Not Recovered/Not Resolved]
  - Anger [Unknown]
  - Dysphemia [Not Recovered/Not Resolved]
  - Vision blurred [Unknown]
